FAERS Safety Report 5907944-X (Version None)
Quarter: 2008Q4

REPORT INFORMATION
  Report Type: 
  Country: None (occurrence: None)
  Receive Date: 20081003
  Receipt Date: 20080922
  Transmission Date: 20090506
  Serious: Yes (Other)
  Sender: FDA-Public Use
  Company Number: JP-PFIZER INC-2008071614

PATIENT
  Sex: Female
  Weight: 63 kg

DRUGS (3)
  1. AROMASIN [Suspect]
     Indication: BREAST CANCER
     Route: 048
     Dates: start: 20070908
  2. BASEN [Concomitant]
     Indication: DIABETES MELLITUS
     Route: 048
  3. JUVELA NICOTINATE [Concomitant]
     Route: 048

REACTIONS (1)
  - HAEMATURIA [None]
